FAERS Safety Report 26206979 (Version 1)
Quarter: 2025Q4

REPORT INFORMATION
  Report Type: Spontaneous
  Country: EU (occurrence: EU)
  Receive Date: 20251229
  Receipt Date: 20251229
  Transmission Date: 20260119
  Serious: Yes (Hospitalization, Congenital Anomaly)
  Sender: AUROBINDO
  Company Number: EU-URPL-DML-MLP.4401.1.331.2025

PATIENT
  Age: 15 Year
  Sex: Female

DRUGS (2)
  1. ACETAMINOPHEN [Suspect]
     Active Substance: ACETAMINOPHEN
     Indication: Product used for unknown indication
     Dosage: UNKNOWN QUANTITY
     Route: 065
  2. AZITHROMYCIN [Concomitant]
     Active Substance: AZITHROMYCIN
     Indication: Product used for unknown indication
     Dosage: UNK
     Route: 065

REACTIONS (9)
  - Hypotension [Unknown]
  - Beaver tail liver [Unknown]
  - Confusional state [Unknown]
  - Vomiting [Unknown]
  - Abdominal pain [Unknown]
  - Metabolic acidosis [Unknown]
  - Transaminases increased [Unknown]
  - International normalised ratio abnormal [Unknown]
  - Ammonia abnormal [Unknown]

NARRATIVE: CASE EVENT DATE: 20250903
